FAERS Safety Report 19097253 (Version 1)
Quarter: 2021Q2

REPORT INFORMATION
  Report Type: Spontaneous
  Country: US (occurrence: US)
  Receive Date: 20210406
  Receipt Date: 20210406
  Transmission Date: 20210717
  Serious: Yes (Death)
  Sender: FDA-Public Use
  Company Number: None

PATIENT
  Sex: Male

DRUGS (9)
  1. PROPRANOLOL [Suspect]
     Active Substance: PROPRANOLOL HYDROCHLORIDE
  2. LEVETIRACETA [Suspect]
     Active Substance: LEVETIRACETAM
  3. OMEPRAZOLE. [Suspect]
     Active Substance: OMEPRAZOLE
  4. TAMSULOSIN [Suspect]
     Active Substance: TAMSULOSIN
  5. CLONAZEPAM. [Suspect]
     Active Substance: CLONAZEPAM
  6. TRAZODONE [Suspect]
     Active Substance: TRAZODONE HYDROCHLORIDE
  7. SPRYCEL [Suspect]
     Active Substance: DASATINIB
     Indication: CHRONIC MYELOID LEUKAEMIA
     Route: 048
     Dates: start: 20190123
  8. CELECOXIB. [Suspect]
     Active Substance: CELECOXIB
  9. LAMOTRIGINE. [Suspect]
     Active Substance: LAMOTRIGINE

REACTIONS (1)
  - Death [None]
